FAERS Safety Report 6802540-4 (Version None)
Quarter: 2010Q2

REPORT INFORMATION
  Report Type: 
  Country: None (occurrence: None)
  Receive Date: 20100628
  Receipt Date: 20100617
  Transmission Date: 20101027
  Serious: Yes (Hospitalization, Disabling)
  Sender: FDA-Public Use
  Company Number: AU-SP-2009-03521

PATIENT
  Sex: Female

DRUGS (1)
  1. IMMUCYST [Suspect]
     Indication: IMMUNISATION
     Route: 030
     Dates: start: 20090812, end: 20090812

REACTIONS (11)
  - ANAPHYLACTIC SHOCK [None]
  - DRUG DISPENSING ERROR [None]
  - FATIGUE [None]
  - INCORRECT ROUTE OF DRUG ADMINISTRATION [None]
  - INJECTION SITE ABSCESS [None]
  - LETHARGY [None]
  - MALAISE [None]
  - MUSCLE DISORDER [None]
  - PAIN IN EXTREMITY [None]
  - PYREXIA [None]
  - WRONG DRUG ADMINISTERED [None]
